FAERS Safety Report 10162754 (Version 1)
Quarter: 2014Q2

REPORT INFORMATION
  Report Type: Spontaneous
  Country: FR (occurrence: FR)
  Receive Date: 20140509
  Receipt Date: 20140509
  Transmission Date: 20141212
  Serious: Yes (Other)
  Sender: FDA-Public Use
  Company Number: FR-PFIZER INC-2014124864

PATIENT
  Age: 60 Year
  Sex: Female

DRUGS (3)
  1. LYRICA [Suspect]
     Dosage: 300 MG, 1X/DAY
  2. RIVOTRIL [Concomitant]
     Dosage: UNK
  3. ATARAX [Concomitant]
     Dosage: UNK

REACTIONS (12)
  - Suicidal ideation [Unknown]
  - Depression [Unknown]
  - Depressed mood [Unknown]
  - Mood swings [Unknown]
  - Constipation [Unknown]
  - Dyspnoea [Unknown]
  - Fatigue [Unknown]
  - Dysarthria [Unknown]
  - Irritability [Unknown]
  - Vision blurred [Unknown]
  - Fall [Unknown]
  - Drug ineffective [Unknown]
